FAERS Safety Report 15982318 (Version 1)
Quarter: 2019Q1

REPORT INFORMATION
  Report Type: Spontaneous
  Country: FR (occurrence: FR)
  Receive Date: 20190219
  Receipt Date: 20190219
  Transmission Date: 20190418
  Serious: Yes (Death, Hospitalization)
  Sender: FDA-Public Use
  Company Number: FR-ELI_LILLY_AND_COMPANY-FR201902003547

PATIENT
  Age: 80 Year
  Sex: Male
  Weight: 84 kg

DRUGS (16)
  1. ACTISKENAN [Interacting]
     Active Substance: MORPHINE SULFATE
     Indication: PAIN
     Dosage: 3 DF, UNKNOWN
     Route: 048
     Dates: end: 20181016
  2. SERESTA [Interacting]
     Active Substance: OXAZEPAM
     Indication: ANXIETY
     Dosage: 20 MG, DAILY
     Route: 048
  3. SKENAN [Interacting]
     Active Substance: MORPHINE SULFATE
     Indication: PAIN
     Dosage: 50 MG, DAILY
     Route: 048
     Dates: end: 20181016
  4. SERETIDE [Concomitant]
     Active Substance: FLUTICASONE PROPIONATE\SALMETEROL XINAFOATE
     Indication: ASTHMA
     Dosage: 2 DF, DAILY
     Route: 055
  5. PARACETAMOL [Concomitant]
     Active Substance: ACETAMINOPHEN
     Indication: PAIN
     Dosage: 4 G, DAILY
     Route: 048
  6. SEEBRI BREEZHALER [Interacting]
     Active Substance: GLYCOPYRROLATE
     Indication: CHRONIC OBSTRUCTIVE PULMONARY DISEASE
     Dosage: 1 DF, DAILY
     Route: 055
  7. TARDYFERON [Concomitant]
     Active Substance: FERROUS SULFATE
     Indication: ANAEMIA
     Dosage: 1 DF, DAILY
     Route: 048
  8. UVEDOSE [Concomitant]
     Active Substance: CHOLECALCIFEROL
     Indication: VITAMIN D DEFICIENCY
     Dosage: UNK UNK, UNKNOWN
     Route: 048
  9. VENTOLINE [SALBUTAMOL] [Concomitant]
     Active Substance: ALBUTEROL SULFATE
     Indication: ASTHMA
     Dosage: UNK UNK, UNKNOWN
     Route: 055
  10. BACTRIM [Concomitant]
     Active Substance: SULFAMETHOXAZOLE\TRIMETHOPRIM
     Indication: INFECTION
     Dosage: 3 DF, WEEKLY (1/W)
     Route: 048
  11. ACUPAN [Interacting]
     Active Substance: NEFOPAM HYDROCHLORIDE
     Indication: PAIN
     Dosage: 60 MG, DAILY
     Route: 048
     Dates: end: 20181015
  12. CYMBALTA [Suspect]
     Active Substance: DULOXETINE HYDROCHLORIDE
     Indication: ANXIETY
     Dosage: 1 DF, DAILY
     Route: 048
  13. ALLOPURINOL. [Concomitant]
     Active Substance: ALLOPURINOL
     Indication: LITHIASIS
     Dosage: 100 MG, DAILY
     Route: 048
  14. MONTELUKAST [Interacting]
     Active Substance: MONTELUKAST SODIUM
     Indication: ASTHMA
     Dosage: 10 MG, DAILY
     Route: 048
     Dates: end: 20181024
  15. LEDERFOLINE [Concomitant]
     Active Substance: LEUCOVORIN CALCIUM
     Indication: PROPHYLAXIS
     Dosage: 1 DF, WEEKLY (1/W)
     Route: 048
  16. CLOBEX [CLOBETASOL PROPIONATE] [Concomitant]
     Indication: PSORIASIS
     Dosage: 1 DF, DAILY
     Route: 061

REACTIONS (5)
  - Drug interaction [Recovered/Resolved]
  - Disorientation [Recovered/Resolved]
  - Fall [Recovered/Resolved]
  - Consciousness fluctuating [Recovered/Resolved]
  - Abnormal behaviour [Recovered/Resolved]

NARRATIVE: CASE EVENT DATE: 201810
